FAERS Safety Report 18227316 (Version 1)
Quarter: 2020Q3

REPORT INFORMATION
  Report Type: Spontaneous
  Country: FR (occurrence: FR)
  Receive Date: 20200903
  Receipt Date: 20200903
  Transmission Date: 20201103
  Serious: Yes (Other)
  Sender: FDA-Public Use
  Company Number: FR-TEVA-2020-FR-1821832

PATIENT
  Age: 59 Year
  Sex: Male
  Weight: 81.9 kg

DRUGS (13)
  1. FUROSEMIDE. [Suspect]
     Active Substance: FUROSEMIDE
     Indication: HYPERTENSION
     Route: 048
  2. BICARBONATE DE SODIUM [Concomitant]
     Active Substance: SODIUM BICARBONATE
  3. ENVARSUS XR [Suspect]
     Active Substance: TACROLIMUS
     Indication: RENAL TRANSPLANT
     Route: 048
     Dates: start: 20190410
  4. KAYEXALATE [Concomitant]
     Active Substance: SODIUM POLYSTYRENE SULFONATE
  5. CORTANCYL [Concomitant]
     Active Substance: PREDNISONE
  6. BISOPROLOL (HEMIFUMARATE DE) [Concomitant]
     Active Substance: BISOPROLOL FUMARATE
  7. MIMPARA [Concomitant]
     Active Substance: CINACALCET HYDROCHLORIDE
  8. ZYMAD [Concomitant]
     Active Substance: CHOLECALCIFEROL
  9. ATORVASTATINE [Suspect]
     Active Substance: ATORVASTATIN
     Indication: DYSLIPIDAEMIA
     Route: 048
  10. VORICONAZOLE. [Suspect]
     Active Substance: VORICONAZOLE
     Indication: ASPERGILLUS INFECTION
     Route: 048
     Dates: start: 20200427, end: 20200710
  11. COUMADINE [Concomitant]
     Active Substance: WARFARIN SODIUM
  12. PANTOPRAZOLE [Concomitant]
     Active Substance: PANTOPRAZOLE
  13. AMLODIPINE [Suspect]
     Active Substance: AMLODIPINE BESYLATE
     Indication: HYPERTENSION
     Route: 048

REACTIONS (4)
  - Burns second degree [Recovering/Resolving]
  - Photosensitivity reaction [Recovering/Resolving]
  - Lip ulceration [Recovering/Resolving]
  - Erythema [Recovering/Resolving]

NARRATIVE: CASE EVENT DATE: 20200511
